FAERS Safety Report 19831590 (Version 1)
Quarter: 2021Q3

REPORT INFORMATION
  Report Type: Spontaneous
  Country: US (occurrence: US)
  Receive Date: 20210914
  Receipt Date: 20210914
  Transmission Date: 20211014
  Serious: Yes (Other)
  Sender: FDA-Public Use
  Company Number: US-PERRIGO-21US016759

PATIENT
  Age: 73 Year
  Sex: Male

DRUGS (2)
  1. RANITIDINE HYDROCHLORIDE (156) [Suspect]
     Active Substance: RANITIDINE HYDROCHLORIDE
     Indication: ABDOMINAL DISCOMFORT
  2. RANITIDINE HYDROCHLORIDE (156) [Suspect]
     Active Substance: RANITIDINE HYDROCHLORIDE
     Indication: DYSPEPSIA
     Dosage: DOSE FREQUENCY: OCCASIONAL
     Route: 048
     Dates: start: 201710, end: 201808

REACTIONS (7)
  - Oesophageal carcinoma [Unknown]
  - Skin cancer [Unknown]
  - Gastric cancer [Unknown]
  - Prostate cancer [Unknown]
  - Bladder cancer [Unknown]
  - Gastrointestinal carcinoma [Unknown]
  - Colorectal cancer [Unknown]

NARRATIVE: CASE EVENT DATE: 20181101
